FAERS Safety Report 8421240-0 (Version None)
Quarter: 2012Q2

REPORT INFORMATION
  Report Type: 
  Country: None (occurrence: None)
  Receive Date: 20120608
  Receipt Date: 20120530
  Transmission Date: 20120825
  Serious: Yes (Hospitalization, Other)
  Sender: FDA-Public Use
  Company Number: US-JNJFOC-20120103969

PATIENT
  Sex: Female

DRUGS (3)
  1. LEVAQUIN [Suspect]
     Indication: BRONCHITIS
     Route: 048
     Dates: start: 20000101, end: 20080101
  2. LEVAQUIN [Suspect]
     Indication: SINUSITIS
     Route: 048
     Dates: start: 20000101, end: 20080101
  3. VITAMIN [Concomitant]
     Indication: ANAEMIA
     Route: 065

REACTIONS (5)
  - DRUG INEFFECTIVE [None]
  - TENDON RUPTURE [None]
  - ROTATOR CUFF SYNDROME [None]
  - TENDON INJURY [None]
  - TENOSYNOVITIS [None]
